FAERS Safety Report 7906009-5 (Version None)
Quarter: 2011Q4

REPORT INFORMATION
  Report Type: 
  Country: None (occurrence: None)
  Receive Date: 20111110
  Receipt Date: 20111102
  Transmission Date: 20120403
  Serious: Yes (Death, Other)
  Sender: FDA-Public Use
  Company Number: US-NAPPMUNDI-USA-2011-0074248

PATIENT
  Sex: Male
  Weight: 80.726 kg

DRUGS (3)
  1. METHADONE HCL [Suspect]
     Indication: PRODUCT USED FOR UNKNOWN INDICATION
  2. XANAX [Suspect]
     Indication: DRUG ABUSE
  3. OXYCONTIN [Suspect]
     Indication: BACK INJURY

REACTIONS (2)
  - DRUG DEPENDENCE [None]
  - MULTIPLE DRUG OVERDOSE ACCIDENTAL [None]
